FAERS Safety Report 10959524 (Version 1)
Quarter: 2015Q1

REPORT INFORMATION
  Report Type: Spontaneous
  Country: US (occurrence: US)
  Receive Date: 20150327
  Receipt Date: 20150327
  Transmission Date: 20150721
  Serious: Yes (Disabling, Other)
  Sender: FDA-Public Use
  Company Number: US-BEH-2011030615

PATIENT
  Age: 55 Year
  Sex: Female
  Weight: 75 kg

DRUGS (42)
  1. HIZENTRA [Suspect]
     Active Substance: HUMAN IMMUNOGLOBULIN G
  2. PSEUDOEPHEDRINE [Concomitant]
     Active Substance: PSEUDOEPHEDRINE
  3. CALAN [Concomitant]
     Active Substance: VERAPAMIL HYDROCHLORIDE
  4. MIRAPEX [Concomitant]
     Active Substance: PRAMIPEXOLE DIHYDROCHLORIDE
  5. HIZENTRA [Suspect]
     Active Substance: HUMAN IMMUNOGLOBULIN G
     Route: 058
  6. NEXIUM [Concomitant]
     Active Substance: ESOMEPRAZOLE MAGNESIUM
  7. HIZENTRA [Suspect]
     Active Substance: HUMAN IMMUNOGLOBULIN G
     Route: 058
  8. HIZENTRA [Suspect]
     Active Substance: HUMAN IMMUNOGLOBULIN G
     Indication: IMMUNODEFICIENCY COMMON VARIABLE
     Dosage: (55 ML) 3-4 SITES OVER 1.5 HOURS
     Route: 058
     Dates: start: 20120315
  9. SINGULAIR [Concomitant]
     Active Substance: MONTELUKAST SODIUM
  10. LISINOPRIL. [Concomitant]
     Active Substance: LISINOPRIL
  11. HIZENTRA [Suspect]
     Active Substance: HUMAN IMMUNOGLOBULIN G
     Route: 058
  12. TERAZOSIN [Concomitant]
     Active Substance: TERAZOSIN\TERAZOSIN HYDROCHLORIDE
  13. TRAMADOL [Concomitant]
     Active Substance: TRAMADOL
  14. FUROSEMIDE. [Concomitant]
     Active Substance: FUROSEMIDE
  15. HIZENTRA [Suspect]
     Active Substance: HUMAN IMMUNOGLOBULIN G
     Dosage: 55 ML EVERY WEEK ON THREE TO FOUR SITES OVER 1.5 HOURS
     Route: 058
     Dates: start: 20111129, end: 20111129
  16. HIZENTRA [Suspect]
     Active Substance: HUMAN IMMUNOGLOBULIN G
     Dates: start: 20110307
  17. HIZENTRA [Suspect]
     Active Substance: HUMAN IMMUNOGLOBULIN G
     Route: 058
  18. ZITHROMAX [Concomitant]
     Active Substance: AZITHROMYCIN DIHYDRATE
  19. FEMHRT [Concomitant]
     Active Substance: ETHINYL ESTRADIOL\NORETHINDRONE ACETATE
  20. ACETAMINOPHEN. [Concomitant]
     Active Substance: ACETAMINOPHEN
  21. NAPROXEN. [Concomitant]
     Active Substance: NAPROXEN
  22. NOVOLOG [Concomitant]
     Active Substance: INSULIN ASPART
  23. METOLAZONE. [Concomitant]
     Active Substance: METOLAZONE
  24. RIBAVIRIN. [Concomitant]
     Active Substance: RIBAVIRIN
  25. HIZENTRA [Suspect]
     Active Substance: HUMAN IMMUNOGLOBULIN G
     Route: 058
  26. SYNTHROID [Concomitant]
     Active Substance: LEVOTHYROXINE SODIUM
  27. ZOFRAN [Concomitant]
     Active Substance: ONDANSETRON HYDROCHLORIDE
  28. FLEXERIL [Concomitant]
     Active Substance: CYCLOBENZAPRINE HYDROCHLORIDE
  29. ADVAIR HFA [Concomitant]
     Active Substance: FLUTICASONE PROPIONATE\SALMETEROL XINAFOATE
  30. POTASSIUM CHLORIDE. [Concomitant]
     Active Substance: POTASSIUM CHLORIDE
  31. LEVEMIR [Concomitant]
     Active Substance: INSULIN DETEMIR
  32. FERROUS SULFATE [Concomitant]
     Active Substance: FERROUS SULFATE\FERROUS SULFATE, DRIED
  33. CITRACAL [Concomitant]
     Active Substance: CALCIUM CITRATE
  34. VITAMIN D [Concomitant]
     Active Substance: CHOLECALCIFEROL
  35. CITALOPRAM [Concomitant]
     Active Substance: CITALOPRAM HYDROBROMIDE
  36. HIZENTRA [Suspect]
     Active Substance: HUMAN IMMUNOGLOBULIN G
     Route: 058
  37. HIZENTRA [Suspect]
     Active Substance: HUMAN IMMUNOGLOBULIN G
     Dosage: 1 GM 5 ML VIAL; 55 ML IN 3-4SITES
     Route: 058
  38. HIZENTRA [Suspect]
     Active Substance: HUMAN IMMUNOGLOBULIN G
     Dosage: 2 GM 10 ML VIAL;55 ML IN 3-4 SITES
     Route: 058
  39. COLCRYS [Concomitant]
     Active Substance: COLCHICINE
  40. ALLEGRA [Concomitant]
     Active Substance: FEXOFENADINE HYDROCHLORIDE
  41. MULTIVITAMIN [Concomitant]
     Active Substance: VITAMINS
  42. PRANDIN [Concomitant]
     Active Substance: REPAGLINIDE

REACTIONS (9)
  - Hepatitis C [Not Recovered/Not Resolved]
  - Sinusitis [Unknown]
  - Oedema peripheral [Unknown]
  - Staphylococcal infection [Unknown]
  - Nausea [Not Recovered/Not Resolved]
  - Infusion site bruising [Unknown]
  - Gout [Unknown]
  - Infusion site erythema [Unknown]
  - Infection [Unknown]

NARRATIVE: CASE EVENT DATE: 20111129
